FAERS Safety Report 17352216 (Version 1)
Quarter: 2020Q1

REPORT INFORMATION
  Report Type: Report from Study
  Country: None (occurrence: US)
  Receive Date: 20200130
  Receipt Date: 20200130
  Transmission Date: 20200409
  Serious: Yes (Other)
  Sender: FDA-Public Use
  Company Number: US-ABBVIE-20K-163-3254908-00

PATIENT
  Sex: Male

DRUGS (3)
  1. 6-MP [Suspect]
     Active Substance: MERCAPTOPURINE
     Indication: PRODUCT USED FOR UNKNOWN INDICATION
     Route: 065
  2. HUMIRA [Suspect]
     Active Substance: ADALIMUMAB
     Indication: COLITIS ULCERATIVE
     Route: 058
  3. 6-MP [Suspect]
     Active Substance: MERCAPTOPURINE
     Dosage: LOWERED MEDICATION
     Route: 065

REACTIONS (2)
  - Infection [Unknown]
  - Skin cancer [Unknown]
